FAERS Safety Report 20196905 (Version 1)
Quarter: 2021Q4

REPORT INFORMATION
  Report Type: Spontaneous
  Country: US (occurrence: US)
  Receive Date: 20211217
  Receipt Date: 20211217
  Transmission Date: 20220303
  Serious: No
  Sender: FDA-Public Use
  Company Number: US-AMGEN-USASP2021198835

PATIENT
  Age: 72 Year
  Sex: Male

DRUGS (1)
  1. NEUPOGEN [Suspect]
     Active Substance: FILGRASTIM
     Indication: Product used for unknown indication
     Dosage: 480 MILLIGRAM, QWK
     Route: 058

REACTIONS (3)
  - Chromaturia [Unknown]
  - Joint stiffness [Unknown]
  - Off label use [Unknown]
